FAERS Safety Report 5868126-3 (Version None)
Quarter: 2008Q3

REPORT INFORMATION
  Report Type: 
  Country: None (occurrence: None)
  Receive Date: 20080902
  Receipt Date: 20080515
  Transmission Date: 20090109
  Serious: No
  Sender: FDA-Public Use
  Company Number: US-ABBOTT-08P-163-0452016-00

PATIENT
  Sex: Female
  Weight: 101.7 kg

DRUGS (14)
  1. DEPAKOTE ER [Suspect]
     Indication: BIPOLAR DISORDER
     Route: 048
     Dates: start: 20040101
  2. AZELASTINE HCL [Concomitant]
     Indication: HYPERSENSITIVITY
     Route: 050
     Dates: start: 20070101
  3. TRESEST [Concomitant]
     Indication: HORMONE REPLACEMENT THERAPY
     Route: 048
     Dates: start: 20030101
  4. IBUPROFEN TABLETS [Concomitant]
     Indication: PAIN
     Route: 048
     Dates: start: 20080101
  5. INEGY [Concomitant]
     Indication: BLOOD CHOLESTEROL
     Route: 048
     Dates: start: 20070101
  6. PHENTERMINE HYDROCHLORIDE [Concomitant]
     Indication: WEIGHT CONTROL
     Route: 048
     Dates: start: 20071201
  7. MONTELUKAST SODIUM [Concomitant]
     Indication: HYPERSENSITIVITY
     Route: 048
     Dates: start: 19980101
  8. MORNIFLUMATE [Concomitant]
     Indication: MICTURITION DISORDER
     Route: 048
     Dates: start: 20070101
  9. CLORAZEPATE DIPOTASSIUM [Concomitant]
     Indication: ANXIETY
     Route: 048
     Dates: start: 20050101
  10. METOPROLOL SUCCINATE [Concomitant]
     Indication: HYPERTENSION
     Route: 048
     Dates: start: 20060101
  11. DEPLIN [Concomitant]
     Indication: WEIGHT CONTROL
     Route: 048
     Dates: start: 20080101
  12. MEDROXYPROGESTERONE [Concomitant]
     Indication: HORMONE REPLACEMENT THERAPY
     Route: 048
     Dates: start: 20030101
  13. DULOXETINE HYDROCHLORIDE [Concomitant]
     Indication: BIPOLAR DISORDER
     Route: 048
     Dates: start: 20050101
  14. RANITIDINE [Concomitant]
     Indication: GASTRIC DISORDER
     Route: 048
     Dates: start: 20030101

REACTIONS (3)
  - RASH ERYTHEMATOUS [None]
  - RASH PRURITIC [None]
  - RASH VESICULAR [None]
